FAERS Safety Report 4807115-4 (Version None)
Quarter: 2005Q4

REPORT INFORMATION
  Report Type: 
  Country: None (occurrence: None)
  Receive Date: 20051024
  Receipt Date: 20051014
  Transmission Date: 20060501
  Serious: Yes (Hospitalization)
  Sender: FDA-Public Use
  Company Number: FR-GLAXOSMITHKLINE-B0397147A

PATIENT
  Age: 75 Year
  Sex: Female
  Weight: 80 kg

DRUGS (5)
  1. ARIXTRA [Suspect]
     Indication: THROMBOSIS PROPHYLAXIS
     Dosage: 2.5MG PER DAY
     Route: 058
     Dates: start: 20041011, end: 20041022
  2. APRANAX [Suspect]
     Indication: DRUG USE FOR UNKNOWN INDICATION
     Dosage: 1100MG PER DAY
     Route: 048
     Dates: end: 20041102
  3. DOLIPRANE [Concomitant]
  4. MOPRAL [Concomitant]
  5. TRAMADOL HCL [Concomitant]

REACTIONS (2)
  - POSTOPERATIVE WOUND COMPLICATION [None]
  - TRAUMATIC HAEMATOMA [None]
